FAERS Safety Report 6594080-5 (Version None)
Quarter: 2010Q1

REPORT INFORMATION
  Report Type: 
  Country: None (occurrence: None)
  Receive Date: 20100222
  Receipt Date: 20100212
  Transmission Date: 20100710
  Serious: Yes (Other)
  Sender: FDA-Public Use
  Company Number: GXKR2010TR01802

PATIENT
  Age: 50 Year
  Sex: Male

DRUGS (3)
  1. FLUOROURACIL [Suspect]
     Indication: RECTAL CANCER
     Dosage: 1 CYCLE
     Route: 065
  2. FOLINIC ACID (NGX) [Suspect]
     Indication: RECTAL CANCER
     Dosage: 1 CYCLE
     Route: 065
  3. OXALIPLATIN [Suspect]
     Indication: RECTAL CANCER
     Dosage: 1 CYCLE
     Route: 065

REACTIONS (1)
  - HEPATITIS B [None]
